FAERS Safety Report 16084620 (Version 1)
Quarter: 2019Q1

REPORT INFORMATION
  Report Type: Spontaneous
  Country: DE (occurrence: DE)
  Receive Date: 20190318
  Receipt Date: 20190318
  Transmission Date: 20190418
  Serious: Yes (Hospitalization, Other)
  Sender: FDA-Public Use
  Company Number: DE-ROCHE-2279540

PATIENT
  Age: 75 Year
  Sex: Female

DRUGS (1)
  1. DIAZEPAM. [Suspect]
     Active Substance: DIAZEPAM
     Indication: ARTHRALGIA
     Route: 014

REACTIONS (4)
  - Haematoma [Recovering/Resolving]
  - Intentional product misuse [Unknown]
  - Intentional product use issue [Unknown]
  - Extremity necrosis [Not Recovered/Not Resolved]
